FAERS Safety Report 25916187 (Version 2)
Quarter: 2025Q4

REPORT INFORMATION
  Report Type: Spontaneous
  Country: CA (occurrence: CA)
  Receive Date: 20251014
  Receipt Date: 20251014
  Transmission Date: 20260118
  Serious: Yes (Other)
  Sender: ACCORD
  Company Number: None

PATIENT
  Age: 70 Year
  Sex: Male

DRUGS (16)
  1. PACLITAXEL [Suspect]
     Active Substance: PACLITAXEL
     Indication: Lung neoplasm malignant
     Route: 042
  2. UMECLIDINIUM BROMIDE\VILANTEROL TRIFENATATE [Concomitant]
     Active Substance: UMECLIDINIUM BROMIDE\VILANTEROL TRIFENATATE
  3. ATORVASTATIN [Concomitant]
     Active Substance: ATORVASTATIN
     Route: 065
  4. CARBOPLATIN [Concomitant]
     Active Substance: CARBOPLATIN
  5. DEXAMETHASONE [Concomitant]
     Active Substance: DEXAMETHASONE
  6. GRANISETRON [Concomitant]
     Active Substance: GRANISETRON
  7. HYDROMORPHONE [Concomitant]
     Active Substance: HYDROMORPHONE
  8. PEMBROLIZUMAB [Concomitant]
     Active Substance: PEMBROLIZUMAB
  9. MELATONIN [Concomitant]
     Active Substance: MELATONIN
  10. NICOTINE [Concomitant]
     Active Substance: NICOTINE
  11. PACLITAXEL [Concomitant]
     Active Substance: PACLITAXEL
  12. PROCHLORPERAZINE [Concomitant]
     Active Substance: PROCHLORPERAZINE
  13. ALBUTEROL [Concomitant]
     Active Substance: ALBUTEROL
  14. SENOKOT [Concomitant]
     Active Substance: SENNOSIDES
  15. SPIRIVA [Concomitant]
     Active Substance: TIOTROPIUM BROMIDE MONOHYDRATE
     Route: 065
  16. TAMSULOSIN [Concomitant]
     Active Substance: TAMSULOSIN

REACTIONS (4)
  - Nausea [Recovered/Resolved]
  - Dyspnoea [Recovered/Resolved]
  - Chest pain [Recovered/Resolved]
  - Dyspepsia [Recovered/Resolved]
